FAERS Safety Report 11220203 (Version 2)
Quarter: 2017Q1

REPORT INFORMATION
  Report Type: Report from Study
  Country: US (occurrence: US)
  Receive Date: 20150625
  Receipt Date: 20170201
  Transmission Date: 20170428
  Serious: No
  Sender: FDA-Public Use
  Company Number: US-EXELIXIS-CABO-15005329

PATIENT
  Age: 42 Year
  Sex: Female

DRUGS (7)
  1. COMETRIQ [Suspect]
     Active Substance: CABOZANTINIB S-MALATE
     Dosage: 60 MG, QD
     Route: 048
     Dates: start: 20160430, end: 201605
  2. COMETRIQ [Suspect]
     Active Substance: CABOZANTINIB S-MALATE
     Dosage: 60 MG, QD
     Route: 048
     Dates: start: 201605
  3. HYDROCODONE [Concomitant]
     Active Substance: HYDROCODONE
  4. REMERON [Concomitant]
     Active Substance: MIRTAZAPINE
  5. COMETRIQ [Suspect]
     Active Substance: CABOZANTINIB S-MALATE
     Indication: THYROID CANCER
     Dosage: 140 MG, QD
     Route: 048
     Dates: start: 20150325, end: 20150408
  6. LEVOTHYROXINE. [Concomitant]
     Active Substance: LEVOTHYROXINE
  7. CALCIUM [Concomitant]
     Active Substance: CALCIUM

REACTIONS (9)
  - Visual impairment [Unknown]
  - Pain in extremity [Recovered/Resolved]
  - Stomatitis [Unknown]
  - Skin exfoliation [Unknown]
  - Pain [Not Recovered/Not Resolved]
  - Walking disability [Unknown]
  - Vision blurred [Recovered/Resolved]
  - Hyperkeratosis [Unknown]
  - Hair colour changes [Unknown]

NARRATIVE: CASE EVENT DATE: 20150406
